FAERS Safety Report 8989996 (Version 2)
Quarter: 2013Q1

REPORT INFORMATION
  Report Type: Spontaneous
  Country: CA (occurrence: CA)
  Receive Date: 20121228
  Receipt Date: 20130110
  Transmission Date: 20140127
  Serious: Yes (Hospitalization)
  Sender: FDA-Public Use
  Company Number: CA-B.I. PHARMACEUTICALS,INC./RIDGEFIELD-2012-CN-02649CN

PATIENT
  Sex: Female

DRUGS (1)
  1. PRADAX [Suspect]
     Dosage: 300 MG
     Dates: start: 2012, end: 201211

REACTIONS (1)
  - Cardiac valve replacement complication [Recovered/Resolved]
